FAERS Safety Report 12494252 (Version 4)
Quarter: 2016Q3

REPORT INFORMATION
  Report Type: Spontaneous
  Country: US (occurrence: US)
  Receive Date: 20160623
  Receipt Date: 20160824
  Transmission Date: 20161109
  Serious: Yes (Other)
  Sender: FDA-Public Use
  Company Number: US-ALLERGAN-1658744US

PATIENT
  Age: 59 Year
  Sex: Female

DRUGS (6)
  1. RESTASIS [Suspect]
     Active Substance: CYCLOSPORINE
     Indication: DRY EYE
     Dosage: 2 GTT, BID
     Route: 047
     Dates: start: 201410
  2. RESTASIS [Suspect]
     Active Substance: CYCLOSPORINE
     Indication: OPTIC NEURITIS
     Dosage: 2 GTT, UNK
     Route: 047
  3. NASOCORT [Concomitant]
     Active Substance: BUDESONIDE
     Indication: HYPERSENSITIVITY
     Dosage: UNK
     Route: 048
  4. BENADRYL [Concomitant]
     Active Substance: DIPHENHYDRAMINE HYDROCHLORIDE
     Indication: HYPERSENSITIVITY
     Dosage: UNK, PRN
     Route: 047
  5. ZYRTEC [Concomitant]
     Active Substance: CETIRIZINE HYDROCHLORIDE
     Indication: HYPERSENSITIVITY
     Dosage: UNK
     Route: 048
  6. SYNVISC [Concomitant]
     Active Substance: HYALURONATE SODIUM
     Indication: JOINT INJURY
     Dosage: UNK UNK, SINGLE

REACTIONS (11)
  - Night blindness [Not Recovered/Not Resolved]
  - Visual acuity reduced [Not Recovered/Not Resolved]
  - Vitreous floaters [Not Recovered/Not Resolved]
  - Wrong technique in product usage process [Unknown]
  - Vision blurred [Not Recovered/Not Resolved]
  - Arthroscopy [Recovered/Resolved]
  - Drug dose omission [Unknown]
  - Optic nerve injury [Not Recovered/Not Resolved]
  - Blindness [Not Recovered/Not Resolved]
  - Knee arthroplasty [Recovered/Resolved]
  - Dyschromatopsia [Not Recovered/Not Resolved]

NARRATIVE: CASE EVENT DATE: 20140623
